FAERS Safety Report 14001617 (Version 1)
Quarter: 2017Q3

REPORT INFORMATION
  Report Type: Spontaneous
  Country: US (occurrence: US)
  Receive Date: 20170922
  Receipt Date: 20170922
  Transmission Date: 20171128
  Serious: Yes (Hospitalization)
  Sender: FDA-Public Use
  Company Number: PR-JNJFOC-20170809713

PATIENT
  Age: 66 Year
  Sex: Male

DRUGS (14)
  1. XARELTO [Suspect]
     Active Substance: RIVAROXABAN
     Indication: CEREBROVASCULAR ACCIDENT PROPHYLAXIS
     Route: 048
     Dates: start: 20160307, end: 201603
  2. ASPIRIN. [Suspect]
     Active Substance: ASPIRIN
     Indication: CORONARY ARTERIAL STENT INSERTION
     Route: 065
     Dates: start: 20160708
  3. XARELTO [Suspect]
     Active Substance: RIVAROXABAN
     Indication: ATRIAL FIBRILLATION
     Route: 048
     Dates: start: 20160307, end: 201603
  4. ASPIRIN. [Suspect]
     Active Substance: ASPIRIN
     Indication: ATRIAL FIBRILLATION
     Route: 065
     Dates: start: 20160708
  5. XARELTO [Suspect]
     Active Substance: RIVAROXABAN
     Indication: CORONARY ARTERIAL STENT INSERTION
     Route: 048
     Dates: start: 20160324, end: 20160708
  6. ASPIRIN. [Suspect]
     Active Substance: ASPIRIN
     Indication: CORONARY ARTERIAL STENT INSERTION
     Route: 065
     Dates: end: 201603
  7. PLAVIX [Suspect]
     Active Substance: CLOPIDOGREL BISULFATE
     Indication: CORONARY ARTERIAL STENT INSERTION
     Route: 048
     Dates: end: 201603
  8. PLAVIX [Suspect]
     Active Substance: CLOPIDOGREL BISULFATE
     Indication: CORONARY ARTERIAL STENT INSERTION
     Route: 048
     Dates: start: 20160324, end: 201607
  9. XARELTO [Suspect]
     Active Substance: RIVAROXABAN
     Indication: CORONARY ARTERIAL STENT INSERTION
     Route: 048
     Dates: start: 20160307, end: 201603
  10. PLAVIX [Suspect]
     Active Substance: CLOPIDOGREL BISULFATE
     Indication: ATRIAL FIBRILLATION
     Route: 048
     Dates: start: 20160324, end: 201607
  11. XARELTO [Suspect]
     Active Substance: RIVAROXABAN
     Indication: ATRIAL FIBRILLATION
     Route: 048
     Dates: start: 20160324, end: 20160708
  12. XARELTO [Suspect]
     Active Substance: RIVAROXABAN
     Indication: CEREBROVASCULAR ACCIDENT PROPHYLAXIS
     Route: 048
     Dates: start: 20160324, end: 20160708
  13. ASPIRIN. [Suspect]
     Active Substance: ASPIRIN
     Indication: ATRIAL FIBRILLATION
     Route: 065
     Dates: end: 201603
  14. PLAVIX [Suspect]
     Active Substance: CLOPIDOGREL BISULFATE
     Indication: ATRIAL FIBRILLATION
     Route: 048
     Dates: end: 201603

REACTIONS (2)
  - Gastrointestinal haemorrhage [Recovering/Resolving]
  - Gastrointestinal angiodysplasia haemorrhagic [Recovering/Resolving]

NARRATIVE: CASE EVENT DATE: 20160321
